FAERS Safety Report 14152143 (Version 10)
Quarter: 2019Q1

REPORT INFORMATION
  Report Type: Spontaneous
  Country: CA (occurrence: CA)
  Receive Date: 20171102
  Receipt Date: 20190218
  Transmission Date: 20190417
  Serious: Yes (Other)
  Sender: FDA-Public Use
  Company Number: CA-ROCHE-2015583

PATIENT
  Age: 40 Year
  Sex: Female

DRUGS (8)
  1. XOLAIR [Suspect]
     Active Substance: OMALIZUMAB
     Route: 058
     Dates: start: 201807
  2. XOLAIR [Suspect]
     Active Substance: OMALIZUMAB
     Route: 058
     Dates: start: 20181126
  3. XOLAIR [Suspect]
     Active Substance: OMALIZUMAB
     Route: 058
     Dates: start: 20181224
  4. CETIRIZINE [Concomitant]
     Active Substance: CETIRIZINE HYDROCHLORIDE
     Indication: SLEEP DISORDER
     Dosage: 4 DF, QD
     Route: 065
  5. XOLAIR [Suspect]
     Active Substance: OMALIZUMAB
     Indication: CHRONIC SPONTANEOUS URTICARIA
     Route: 058
     Dates: start: 20140210
  6. BENADRYL [Concomitant]
     Active Substance: DIPHENHYDRAMINE HYDROCHLORIDE
     Indication: SLEEP DISORDER
     Route: 065
  7. XOLAIR [Suspect]
     Active Substance: OMALIZUMAB
     Dosage: UNK
     Route: 058
     Dates: start: 20170601
  8. XOLAIR [Suspect]
     Active Substance: OMALIZUMAB
     Dosage: UNK
     Route: 058
     Dates: start: 20180525

REACTIONS (21)
  - Cytomegalovirus test negative [Unknown]
  - Mean cell volume decreased [Unknown]
  - Sjogren^s syndrome [Unknown]
  - Insomnia [Unknown]
  - Anaemia [Unknown]
  - Blood creatinine abnormal [Unknown]
  - Herpes simplex test positive [Unknown]
  - Epstein-Barr virus antibody negative [Unknown]
  - Respiratory papilloma [Unknown]
  - Vitiligo [Unknown]
  - Anxiety [Unknown]
  - Angioedema [Unknown]
  - Rash [Unknown]
  - Neutrophil count abnormal [Unknown]
  - Pharyngitis streptococcal [Unknown]
  - Tonsillar hypertrophy [Unknown]
  - Tonsillitis [Unknown]
  - Urticaria [Not Recovered/Not Resolved]
  - Depression [Unknown]
  - Oropharyngeal pain [Unknown]
  - Basedow^s disease [Unknown]

NARRATIVE: CASE EVENT DATE: 20170721
